FAERS Safety Report 13496342 (Version 2)
Quarter: 2018Q2

REPORT INFORMATION
  Report Type: Report from Study
  Country: None (occurrence: US)
  Receive Date: 20170428
  Receipt Date: 20180417
  Transmission Date: 20180711
  Serious: Yes (Other)
  Sender: FDA-Public Use
  Company Number: US-ABBVIE-17K-163-1902165-00

PATIENT
  Age: 53 Year
  Sex: Female
  Weight: 79.45 kg

DRUGS (2)
  1. HUMIRA [Suspect]
     Active Substance: ADALIMUMAB
     Indication: CROHN^S DISEASE
     Route: 058
     Dates: start: 20150903
  2. HUMIRA [Suspect]
     Active Substance: ADALIMUMAB
     Route: 058

REACTIONS (22)
  - Weight decreased [Recovering/Resolving]
  - Upper-airway cough syndrome [Not Recovered/Not Resolved]
  - Vomiting [Not Recovered/Not Resolved]
  - Impaired gastric emptying [Unknown]
  - Retching [Not Recovered/Not Resolved]
  - Laryngitis [Unknown]
  - Sinusitis [Unknown]
  - Stress [Recovering/Resolving]
  - Sinus polyp [Not Recovered/Not Resolved]
  - Headache [Unknown]
  - Headache [Recovering/Resolving]
  - Lymphadenopathy [Unknown]
  - Benign lung neoplasm [Unknown]
  - Crohn^s disease [Unknown]
  - Oesophageal hypomotility [Not Recovered/Not Resolved]
  - Anal incontinence [Unknown]
  - Insomnia [Unknown]
  - Cough [Not Recovered/Not Resolved]
  - Vomiting [Not Recovered/Not Resolved]
  - Hypertension [Not Recovered/Not Resolved]
  - Urinary incontinence [Recovered/Resolved]
  - Laryngeal disorder [Unknown]

NARRATIVE: CASE EVENT DATE: 2016
